FAERS Safety Report 24020923 (Version 1)
Quarter: 2024Q2

REPORT INFORMATION
  Report Type: Spontaneous
  Country: CN (occurrence: CN)
  Receive Date: 20240627
  Receipt Date: 20240627
  Transmission Date: 20240716
  Serious: Yes (Disabling)
  Sender: FDA-Public Use
  Company Number: CN-Merck Healthcare KGaA-2024033654

PATIENT
  Age: 82 Year
  Sex: Male
  Weight: 54 kg

DRUGS (4)
  1. ERBITUX [Suspect]
     Active Substance: CETUXIMAB
     Indication: Colon cancer
     Dosage: 800 MG, UNKNOWN
     Route: 041
     Dates: start: 20240510, end: 20240510
  2. IRINOTECAN HYDROCHLORIDE [Suspect]
     Active Substance: IRINOTECAN HYDROCHLORIDE
     Indication: Colon cancer
     Dosage: 210 MG, DAILY
     Route: 041
     Dates: start: 20240511, end: 20240511
  3. SODIUM CHLORIDE [Concomitant]
     Active Substance: SODIUM CHLORIDE
     Indication: Medication dilution
     Dosage: 340 ML, DAILY
     Route: 041
     Dates: start: 20240510, end: 20240510
  4. SODIUM CHLORIDE [Concomitant]
     Active Substance: SODIUM CHLORIDE
     Dosage: 250 ML, DAILY
     Route: 041
     Dates: start: 20240511, end: 20240511

REACTIONS (1)
  - Myelosuppression [Recovering/Resolving]

NARRATIVE: CASE EVENT DATE: 20240516
